FAERS Safety Report 4352491-2 (Version None)
Quarter: 2004Q2

REPORT INFORMATION
  Report Type: 
  Country: None (occurrence: None)
  Receive Date: 20040409
  Receipt Date: 20040109
  Transmission Date: 20050107
  Serious: No
  Sender: FDA-Public Use
  Company Number: PHEH2004US00709

PATIENT

DRUGS (1)
  1. ELIDEL [Suspect]
     Dosage: TOPICAL
     Route: 061
     Dates: start: 20030201

REACTIONS (1)
  - APPLICATION SITE PIGMENTATION CHANGES [None]
